FAERS Safety Report 15412306 (Version 1)
Quarter: 2018Q3

REPORT INFORMATION
  Report Type: Report from Study
  Country: US (occurrence: US)
  Receive Date: 20180921
  Receipt Date: 20180921
  Transmission Date: 20181010
  Serious: Yes (Hospitalization)
  Sender: FDA-Public Use
  Company Number: US-GILEAD-2018-0364244

PATIENT
  Age: 70 Year
  Sex: Male

DRUGS (16)
  1. FLUOCINONIDE. [Concomitant]
     Active Substance: FLUOCINONIDE
  2. IRON [Concomitant]
     Active Substance: IRON
  3. MAGNESIUM [Concomitant]
     Active Substance: MAGNESIUM
  4. ASPIRIN                            /00002701/ [Concomitant]
     Active Substance: ASPIRIN
  5. POTASSIUM CHLORIDE. [Concomitant]
     Active Substance: POTASSIUM CHLORIDE
  6. LORATADINE. [Concomitant]
     Active Substance: LORATADINE
  7. AMBRISENTAN [Suspect]
     Active Substance: AMBRISENTAN
     Indication: PULMONARY HYPERTENSION
     Dosage: 10 MG, QD
     Route: 065
     Dates: start: 20150626
  8. NASONEX [Concomitant]
     Active Substance: MOMETASONE FUROATE
  9. SUCRALFATE. [Concomitant]
     Active Substance: SUCRALFATE
  10. TERAZOSIN [Concomitant]
     Active Substance: TERAZOSIN\TERAZOSIN HYDROCHLORIDE
  11. VITAMIN D                          /00107901/ [Concomitant]
     Active Substance: ERGOCALCIFEROL
  12. BYSTOLIC [Concomitant]
     Active Substance: NEBIVOLOL HYDROCHLORIDE
  13. OMEPRAZOLE. [Concomitant]
     Active Substance: OMEPRAZOLE
  14. LISINOPRIL. [Concomitant]
     Active Substance: LISINOPRIL
  15. ADCIRCA [Concomitant]
     Active Substance: TADALAFIL
  16. MULTIVITAMIN                       /00097801/ [Concomitant]
     Active Substance: VITAMINS

REACTIONS (2)
  - Pleural effusion [Unknown]
  - Ill-defined disorder [Unknown]
